FAERS Safety Report 8254802-4 (Version None)
Quarter: 2012Q2

REPORT INFORMATION
  Report Type: 
  Country: None (occurrence: None)
  Receive Date: 20120403
  Receipt Date: 20120329
  Transmission Date: 20120825
  Serious: Yes (Hospitalization, Disabling, Other)
  Sender: FDA-Public Use
  Company Number: PHEH2004US014160

PATIENT
  Sex: Female

DRUGS (74)
  1. POTASSIUM CHLORIDE [Concomitant]
  2. VALIUM [Concomitant]
     Dosage: 2 MG, UNK
  3. FLORINEF [Concomitant]
  4. DOXYCYCLINE [Concomitant]
  5. RESTASIS [Concomitant]
  6. CARDIZEM [Concomitant]
     Dosage: 60 MG, RUN IN PHASE
  7. PROVENTIL GENTLEHALER [Concomitant]
  8. SOLU-CORTEF [Concomitant]
  9. DIPRIVAN [Concomitant]
  10. CIPROFLOXACIN HCL [Concomitant]
     Dosage: 250 MG, QD
  11. PRIMODIAN [Concomitant]
  12. NEUTRA-PHOS [Concomitant]
  13. ATROVENT [Concomitant]
  14. FENTANYL [Concomitant]
  15. MULTI-VITAMINS [Concomitant]
  16. KYTRIL [Concomitant]
     Dosage: 1 MG, UNK
  17. NITROGLYCERIN [Concomitant]
  18. SIMVASTATIN [Concomitant]
  19. POTASSIUM CHLORIDE [Concomitant]
     Dosage: 20 MEQ, QD
  20. AUGMENTIN '125' [Concomitant]
  21. DIGOXIN [Concomitant]
     Dosage: 0.063 MG, QOD
  22. ASPIRIN [Concomitant]
     Dosage: 81 MG, QD
     Route: 048
  23. MYSOLINE [Concomitant]
  24. PROTONIX [Concomitant]
  25. AREDIA [Suspect]
     Indication: MULTIPLE MYELOMA
  26. CYTOXAN [Concomitant]
  27. PIRAMIDON [Concomitant]
     Dosage: 250 MG, UNK
  28. CALCIUM CARBONATE [Concomitant]
  29. GENTEAL LUBRICANT [Concomitant]
  30. GENTEAL [Concomitant]
     Dosage: 2 GTT, TID
  31. ROXICET [Concomitant]
  32. KAYEXALATE [Concomitant]
  33. SEVELAMER [Concomitant]
     Dosage: 1600 MG, TID
  34. OXYGEN THERAPY [Concomitant]
  35. PREMARIN                                /SCH/ [Concomitant]
     Dosage: 250 MG, QD
     Route: 048
  36. BUPIVACAINE HYDROCHLORIDE W/EPINEPHRINE [Concomitant]
  37. GLYCOPYRROLATE [Concomitant]
  38. TORADOL [Concomitant]
  39. POTASSIUM ACETATE [Concomitant]
  40. VINCRISTINE [Concomitant]
  41. ADRIAMYCIN PFS [Concomitant]
  42. NEPHROCAPS [Concomitant]
  43. SURFAK [Concomitant]
  44. CLEOCIN HYDROCHLORIDE [Concomitant]
  45. AREDIA [Suspect]
     Indication: HYPERCALCAEMIA OF MALIGNANCY
     Dosage: 90 MG, QMO
     Route: 042
     Dates: start: 19980119, end: 20010524
  46. ZOMETA [Suspect]
     Indication: HYPERCALCAEMIA OF MALIGNANCY
     Dosage: 4 MG, QMO
     Route: 042
  47. COUMADIN [Concomitant]
  48. MELPHALAN HYDROCHLORIDE [Concomitant]
  49. QUININE SULFATE [Concomitant]
     Dosage: 500 MG, BID
  50. PRIMIDONE [Concomitant]
  51. ZOMETA [Suspect]
     Indication: MULTIPLE MYELOMA
  52. MS CONTIN [Concomitant]
  53. PREDNISONE TAB [Concomitant]
  54. DECADRON [Concomitant]
  55. TYLENOL W/ CODEINE NO. 3 [Concomitant]
  56. LASIX [Concomitant]
     Dosage: 20 MG, UNK
  57. ATIVAN [Concomitant]
     Dosage: 0.25 MG, UNK
  58. OXYCONTIN [Concomitant]
     Dosage: 10 MG, UNK
  59. PIRAMIDONE [Concomitant]
     Dosage: 250 MG, QD
  60. CORTEF [Concomitant]
     Dosage: 5 MG, BID
  61. PROAMATINE [Concomitant]
     Dosage: 10 MG, BID
  62. RENA-VITE [Concomitant]
  63. AMPICILLIN W/SULBACTAM [Concomitant]
  64. NEOSTIGMINE [Concomitant]
  65. PREVACID [Concomitant]
  66. PAXIL [Concomitant]
  67. AXID [Concomitant]
     Dosage: 150 MG, UNK
  68. DIFLUCAN [Concomitant]
     Dosage: 200 MG, UNK
  69. HYDROCORTISONE [Concomitant]
  70. PLAVIX [Concomitant]
  71. NITROGLYCERIN [Concomitant]
  72. CALCIUM WITH VITAMIN D [Concomitant]
  73. MAG-OX [Concomitant]
  74. GENTAMICIN SULFATE [Concomitant]

REACTIONS (100)
  - IMPAIRED HEALING [None]
  - OSTEOMYELITIS [None]
  - OSTEOSCLEROSIS [None]
  - PAIN IN JAW [None]
  - KLEBSIELLA INFECTION [None]
  - PAIN [None]
  - ARTERIAL OCCLUSIVE DISEASE [None]
  - PLEURAL EFFUSION [None]
  - NEUROPATHY PERIPHERAL [None]
  - THROMBOCYTOPENIA [None]
  - FANCONI SYNDROME [None]
  - DYSPHAGIA [None]
  - WEIGHT DECREASED [None]
  - COAGULOPATHY [None]
  - MYOCLONUS [None]
  - HIP FRACTURE [None]
  - CARDIAC DISORDER [None]
  - TRICUSPID VALVE INCOMPETENCE [None]
  - ADDISON'S DISEASE [None]
  - SEPTIC SHOCK [None]
  - ANAEMIA OF CHRONIC DISEASE [None]
  - HYPERPARATHYROIDISM [None]
  - MYELOMA RECURRENCE [None]
  - VISUAL IMPAIRMENT [None]
  - JOINT DISLOCATION [None]
  - SWELLING FACE [None]
  - CANDIDIASIS [None]
  - INFECTION [None]
  - CATHETERISATION CARDIAC [None]
  - CARDIAC ARREST [None]
  - OSTEOPENIA [None]
  - PERIPHERAL ARTERIAL OCCLUSIVE DISEASE [None]
  - EJECTION FRACTION DECREASED [None]
  - PLEURAL FIBROSIS [None]
  - DEAFNESS [None]
  - GAIT DISTURBANCE [None]
  - DECREASED APPETITE [None]
  - SEPSIS [None]
  - LYMPHADENOPATHY [None]
  - DILATATION VENTRICULAR [None]
  - SKIN BURNING SENSATION [None]
  - X-RAY ABNORMAL [None]
  - BIOPSY BONE ABNORMAL [None]
  - JAW FRACTURE [None]
  - MASTICATION DISORDER [None]
  - CELLULITIS [None]
  - FACIAL PAIN [None]
  - RIB FRACTURE [None]
  - PULMONARY HYPERTENSION [None]
  - CARDIOMEGALY [None]
  - ABSCESS NECK [None]
  - ORTHOSTATIC HYPOTENSION [None]
  - CATARACT [None]
  - DIPLOPIA [None]
  - KYPHOSIS [None]
  - ECCHYMOSIS [None]
  - EDENTULOUS [None]
  - OSTEOLYSIS [None]
  - ENTEROCOCCUS TEST POSITIVE [None]
  - TONGUE ULCERATION [None]
  - HYPOKALAEMIA [None]
  - THROMBOSIS IN DEVICE [None]
  - RENAL FAILURE CHRONIC [None]
  - ATELECTASIS [None]
  - ATRIAL FIBRILLATION [None]
  - INFLAMMATION [None]
  - ANEURYSM [None]
  - OSTEONECROSIS OF JAW [None]
  - SOFT TISSUE DISORDER [None]
  - OEDEMA DUE TO CARDIAC DISEASE [None]
  - PULMONARY OEDEMA [None]
  - STREPTOCOCCAL SEPSIS [None]
  - SPINAL COMPRESSION FRACTURE [None]
  - KYPHOSCOLIOSIS [None]
  - MITRAL VALVE INCOMPETENCE [None]
  - SKIN ATROPHY [None]
  - PAROTITIS [None]
  - BREAST HAEMATOMA [None]
  - BONE DISORDER [None]
  - PURULENT DISCHARGE [None]
  - HYPERKALAEMIA [None]
  - CARDIOVASCULAR DISORDER [None]
  - PSEUDOMONAS INFECTION [None]
  - HYPOTENSION [None]
  - EXTREMITY NECROSIS [None]
  - ARTERIOVENOUS FISTULA SITE COMPLICATION [None]
  - OTITIS MEDIA CHRONIC [None]
  - CONTUSION [None]
  - ORAL CAVITY FISTULA [None]
  - DYSGEUSIA [None]
  - JOINT CREPITATION [None]
  - DENTAL ALVEOLAR ANOMALY [None]
  - DENTAL EXAMINATION ABNORMAL [None]
  - MALNUTRITION [None]
  - CARDIAC FAILURE CONGESTIVE [None]
  - PULMONARY CONGESTION [None]
  - PERIPHERAL VASCULAR DISORDER [None]
  - CORONARY ARTERY DISEASE [None]
  - ADRENAL INSUFFICIENCY [None]
  - HEPATIC ENZYME ABNORMAL [None]
